FAERS Safety Report 5445252-4 (Version None)
Quarter: 2007Q3

REPORT INFORMATION
  Report Type: 
  Country: None (occurrence: None)
  Receive Date: 20070731
  Receipt Date: 20070611
  Transmission Date: 20080115
  Serious: Yes (Hospitalization)
  Sender: FDA-Public Use
  Company Number: US200705003156

PATIENT
  Age: 34 Year
  Sex: Female

DRUGS (4)
  1. BYETTA [Suspect]
     Indication: DIABETES MELLITUS
     Dosage: 5 UG, 2/D, SUBCUTANEOUS 5 UG, 2/D, SUBCUTANEOUS
     Route: 058
     Dates: start: 20060812, end: 20060903
  2. BYETTA [Suspect]
     Indication: DIABETES MELLITUS
     Dosage: 5 UG, 2/D, SUBCUTANEOUS 5 UG, 2/D, SUBCUTANEOUS
     Route: 058
     Dates: start: 20070507, end: 20070508
  3. METFORMIN [Concomitant]
  4. ESTROGEL [Concomitant]

REACTIONS (1)
  - ANAPHYLACTIC REACTION [None]
